FAERS Safety Report 9508057 (Version 2)
Quarter: 2013Q4

REPORT INFORMATION
  Report Type: Spontaneous
  Country: BR (occurrence: BR)
  Receive Date: 20130909
  Receipt Date: 20131205
  Transmission Date: 20140711
  Serious: Yes (Other)
  Sender: FDA-Public Use
  Company Number: BR-BAYER-2013-108178

PATIENT
  Sex: Female

DRUGS (1)
  1. REGORAFENIB [Suspect]
     Indication: COLORECTAL CANCER METASTATIC
     Dosage: UNK
     Route: 048

REACTIONS (2)
  - Colorectal cancer metastatic [None]
  - Off label use [None]
